FAERS Safety Report 7989331-6 (Version None)
Quarter: 2011Q4

REPORT INFORMATION
  Report Type: 
  Country: None (occurrence: None)
  Receive Date: 20111219
  Receipt Date: 20111215
  Transmission Date: 20120403
  Serious: Yes (Other)
  Sender: FDA-Public Use
  Company Number: US-BAYER-2011-102907

PATIENT
  Age: 62 Year
  Sex: Female

DRUGS (5)
  1. DEXAMETHASONE [Concomitant]
  2. NEXAVAR [Suspect]
     Indication: RENAL CELL CARCINOMA
     Dosage: 400 MG, BID
     Dates: start: 20111006
  3. ANTITHROMBOTIC AGENTS [Concomitant]
     Indication: DEEP VEIN THROMBOSIS
     Dosage: UNK
  4. CORTEF [Concomitant]
     Indication: ADRENAL INSUFFICIENCY
  5. CORTEF [Concomitant]
     Indication: BRAIN OEDEMA

REACTIONS (15)
  - ADRENAL INSUFFICIENCY [None]
  - MUSCULAR WEAKNESS [None]
  - HYPERTENSION [None]
  - ABDOMINAL DISCOMFORT [None]
  - BLOOD POTASSIUM DECREASED [None]
  - METASTASES TO CENTRAL NERVOUS SYSTEM [None]
  - BRAIN OEDEMA [None]
  - RASH PAPULAR [None]
  - PALPITATIONS [None]
  - METASTASES TO LUNG [None]
  - BLOOD URINE PRESENT [None]
  - MUSCLE ATROPHY [None]
  - CANDIDIASIS [None]
  - COUGH [None]
  - PULMONARY CAVITATION [None]
